FAERS Safety Report 21886232 (Version 2)
Quarter: 2023Q1

REPORT INFORMATION
  Report Type: Report from Study
  Country: MX (occurrence: MX)
  Receive Date: 20230119
  Receipt Date: 20230203
  Transmission Date: 20230417
  Serious: Yes (Other)
  Sender: FDA-Public Use
  Company Number: MX-BAYER-2022A067688

PATIENT
  Age: 58 Year
  Sex: Male

DRUGS (4)
  1. NEXAVAR [Suspect]
     Active Substance: SORAFENIB
     Indication: Hepatocellular carcinoma
     Dosage: 400 MG, BID
     Route: 048
     Dates: start: 20220429, end: 20220629
  2. NEXAVAR [Suspect]
     Active Substance: SORAFENIB
     Indication: Hepatocellular carcinoma
     Dosage: 600 MG DAILY (400 MG AND 200 MG EVERY 12 HOURS)
     Dates: start: 20220811, end: 20220928
  3. NEXAVAR [Suspect]
     Active Substance: SORAFENIB
     Indication: Hepatocellular carcinoma
     Dosage: REDUCED DOSE
     Dates: start: 20221205
  4. NEXAVAR [Suspect]
     Active Substance: SORAFENIB
     Indication: Hepatocellular carcinoma
     Dosage: DAILY DOSE 120 MG
     Route: 048
     Dates: start: 20230111

REACTIONS (8)
  - Hepatic failure [Recovering/Resolving]
  - Throat irritation [Not Recovered/Not Resolved]
  - Oropharyngeal pain [Not Recovered/Not Resolved]
  - Pyrexia [Recovered/Resolved with Sequelae]
  - Dizziness [Recovered/Resolved]
  - Asthenia [None]
  - Blood bilirubin increased [None]
  - Nutritional condition abnormal [None]

NARRATIVE: CASE EVENT DATE: 20220508
